FAERS Safety Report 4673271-4 (Version None)
Quarter: 2005Q2

REPORT INFORMATION
  Report Type: 
  Country: None (occurrence: None)
  Receive Date: 20050523
  Receipt Date: 20050523
  Transmission Date: 20051028
  Serious: Yes (Life-Threatening, Hospitalization)
  Sender: FDA-Public Use
  Company Number: None

PATIENT
  Age: 73 Year
  Sex: Male
  Weight: 100.7 kg

DRUGS (10)
  1. WARFARIN [Suspect]
     Indication: ANTICOAGULANT THERAPY
     Dosage: 2.5MG, DAILY, ORALLY
     Route: 048
  2. FLUCONAZOLE [Concomitant]
  3. FLUNISOLIDE *AEROBID* [Concomitant]
  4. HYDROCODONE 5MG/APAP [Concomitant]
  5. PREDNISONE TAB [Concomitant]
  6. THEOPHYLLINE-SR [Concomitant]
  7. WARFARIN SODIUM [Concomitant]
  8. GATIFLOXACIN [Concomitant]
  9. IPRATROPIUM BROMIDE [Concomitant]
  10. LEVALBUTEROL [Concomitant]

REACTIONS (1)
  - GASTROINTESTINAL HAEMORRHAGE [None]
